FAERS Safety Report 4304602-2 (Version None)
Quarter: 2004Q1

REPORT INFORMATION
  Report Type: 
  Country: None (occurrence: None)
  Receive Date: 20040225
  Receipt Date: 20040225
  Transmission Date: 20041129
  Serious: Yes (Other)
  Sender: FDA-Public Use
  Company Number: None

PATIENT
  Sex: Female
  Weight: 88.905 kg

DRUGS (1)
  1. CRESTOR [Suspect]
     Indication: HYPERLIPIDAEMIA
     Dosage: ONE TAB QD ORAL
     Route: 048
     Dates: start: 20040201, end: 20040210

REACTIONS (2)
  - ARTHRALGIA [None]
  - POLYMYALGIA [None]
